FAERS Safety Report 8966035 (Version 1)
Quarter: 2012Q4

REPORT INFORMATION
  Report Type: 
  Country: US (occurrence: US)
  Receive Date: 20121214
  Receipt Date: 20121214
  Transmission Date: 20130627
  Serious: Yes (Hospitalization)
  Sender: FDA-Public Use
  Company Number: US-ACTELION-A-US2011-48288

PATIENT
  Age: 41 Year
  Sex: Female

DRUGS (5)
  1. TRACLEER [Suspect]
     Indication: PULMONARY ARTERIAL HYPERTENSION
     Dosage: 125 mg, bid
     Route: 048
  2. TRACLEER [Suspect]
     Dosage: 62.5 mg, bid
     Route: 048
     Dates: start: 20080126, end: 200802
  3. REVATIO [Concomitant]
  4. REMODULIN [Concomitant]
  5. ALDACTONE [Concomitant]

REACTIONS (14)
  - Hyperkalaemia [Unknown]
  - Pneumonia [Unknown]
  - Hypokalaemia [Recovered/Resolved]
  - Oedema [Unknown]
  - Dyspnoea [Unknown]
  - Blood potassium decreased [Recovering/Resolving]
  - Malaise [Recovering/Resolving]
  - Fatigue [Recovered/Resolved]
  - Poor quality sleep [Unknown]
  - Dizziness [Unknown]
  - Pain [Recovered/Resolved]
  - Musculoskeletal pain [Unknown]
  - Nausea [Unknown]
  - Vomiting [Unknown]
